FAERS Safety Report 8284011-4 (Version None)
Quarter: 2012Q2

REPORT INFORMATION
  Report Type: 
  Country: None (occurrence: None)
  Receive Date: 20120413
  Receipt Date: 20111003
  Transmission Date: 20120825
  Serious: No
  Sender: FDA-Public Use
  Company Number: US-ASTRAZENECA-2006UW07852

PATIENT
  Age: 82 Year
  Sex: Female
  Weight: 90.7 kg

DRUGS (7)
  1. EVISTA [Concomitant]
  2. BENICAR [Concomitant]
  3. NORVASC [Concomitant]
  4. SPIRONOLACTONE [Concomitant]
  5. NEXIUM [Suspect]
     Route: 048
  6. ATENOLOL [Concomitant]
  7. NEXIUM [Suspect]
     Indication: ULCER HAEMORRHAGE
     Route: 048

REACTIONS (2)
  - DISCOMFORT [None]
  - INAPPROPRIATE SCHEDULE OF DRUG ADMINISTRATION [None]
